FAERS Safety Report 24104321 (Version 1)
Quarter: 2024Q3

REPORT INFORMATION
  Report Type: Spontaneous
  Country: CA (occurrence: CA)
  Receive Date: 20240717
  Receipt Date: 20240717
  Transmission Date: 20241017
  Serious: Yes (Hospitalization)
  Sender: FRESENIUS KABI
  Company Number: CA-FreseniusKabi-FK202410954

PATIENT
  Age: 74 Year
  Sex: Female
  Weight: 64 kg

DRUGS (8)
  1. TOBRAMYCIN [Suspect]
     Active Substance: TOBRAMYCIN\TOBRAMYCIN SULFATE
     Indication: Pneumonia pseudomonal
     Dosage: FORM OF ADMIN: POWDER FOR SOLUTION INTRAVENOUS
     Route: 042
  2. ALENDRONATE [Concomitant]
     Active Substance: ALENDRONATE SODIUM
     Indication: Product used for unknown indication
     Dosage: FOA: TABLETS
  3. CEFTAZIDIME [Concomitant]
     Active Substance: CEFTAZIDIME
     Indication: Product used for unknown indication
     Dosage: FOA: POWDER FOR SOLUTION
  4. LEFLUNOMIDE [Concomitant]
     Active Substance: LEFLUNOMIDE
     Indication: Product used for unknown indication
     Dosage: FOA: NOT SPECIFIED
  5. MONTELUKAST [Concomitant]
     Active Substance: MONTELUKAST SODIUM
     Indication: Product used for unknown indication
     Dosage: FOA: NOT SPECIFIED
  6. PERINDOPRIL [Concomitant]
     Active Substance: PERINDOPRIL
     Indication: Product used for unknown indication
     Dosage: FOA: NOT SPECIFIED
  7. PREDNISONE [Concomitant]
     Active Substance: PREDNISONE
     Indication: Product used for unknown indication
     Dosage: FOA: NOT SPECIFIED
  8. RANITIDINE [Concomitant]
     Active Substance: RANITIDINE
     Indication: Product used for unknown indication
     Dosage: FOA: NOT SPECIFIED

REACTIONS (5)
  - Balance disorder [Recovered/Resolved]
  - Dizziness [Recovered/Resolved]
  - Nausea [Recovered/Resolved]
  - Vertigo [Recovered/Resolved]
  - Vomiting [Recovered/Resolved]
